FAERS Safety Report 11835476 (Version 1)
Quarter: 2015Q4

REPORT INFORMATION
  Report Type: Spontaneous
  Country: None (occurrence: None)
  Receive Date: 20151214
  Receipt Date: 20151214
  Transmission Date: 20160305
  Serious: No
  Sender: FDA-Public Use
  Company Number: None

PATIENT
  Age: 31 Year
  Sex: Female
  Weight: 52.62 kg

DRUGS (1)
  1. LO LOESTRIN FE [Suspect]
     Active Substance: ETHINYL ESTRADIOL\NORETHINDRONE ACETATE
     Indication: CONTRACEPTION
     Dates: start: 20150607, end: 20151031

REACTIONS (4)
  - Joint swelling [None]
  - Joint effusion [None]
  - Inflammation [None]
  - Joint stiffness [None]

NARRATIVE: CASE EVENT DATE: 20150726
